FAERS Safety Report 26020303 (Version 1)
Quarter: 2025Q4

REPORT INFORMATION
  Report Type: Spontaneous
  Country: US (occurrence: PR)
  Receive Date: 20251110
  Receipt Date: 20251110
  Transmission Date: 20260118
  Serious: Yes (Hospitalization)
  Sender: ANI
  Company Number: US-ANIPHARMA-2025-PR-000106

PATIENT
  Age: 31 Year
  Sex: Male

DRUGS (6)
  1. CORTICOTROPIN [Suspect]
     Active Substance: CORTICOTROPIN
     Indication: Systemic lupus erythematosus
     Dosage: SUBCUTANEOUS TWO TIMES PER WEEK
     Route: 058
  2. CELLCEPT [Concomitant]
     Active Substance: MYCOPHENOLATE MOFETIL
  3. PROCARDIA XL [Concomitant]
     Active Substance: NIFEDIPINE
  4. VITAMIN C [Concomitant]
     Active Substance: ASCORBIC ACID
  5. D-3-5 [Concomitant]
  6. BENLYSTA [Concomitant]
     Active Substance: BELIMUMAB

REACTIONS (1)
  - Biopsy kidney [Unknown]

NARRATIVE: CASE EVENT DATE: 20251001
